FAERS Safety Report 9291162 (Version 1)
Quarter: 2013Q2

REPORT INFORMATION
  Report Type: Spontaneous
  Country: NL (occurrence: NL)
  Receive Date: 20130515
  Receipt Date: 20130515
  Transmission Date: 20140414
  Serious: Yes (Death, Hospitalization)
  Sender: FDA-Public Use
  Company Number: NL-COVIDIEN/TYCO HEALTHCARE/MALLINCKRODT-T201301893

PATIENT
  Age: 71 Year
  Sex: Female

DRUGS (1)
  1. SODIUM IODIDE (I 131) [Suspect]
     Indication: GOITRE
     Dosage: 20 MCI X2, ONE MONTH APART
     Route: 048

REACTIONS (4)
  - Basedow^s disease [Fatal]
  - Atrial fibrillation [Fatal]
  - Cardiac failure [Fatal]
  - Coma [Fatal]
